FAERS Safety Report 8290504-6 (Version None)
Quarter: 2012Q2

REPORT INFORMATION
  Report Type: 
  Country: None (occurrence: None)
  Receive Date: 20120417
  Receipt Date: 20110519
  Transmission Date: 20120825
  Serious: No
  Sender: FDA-Public Use
  Company Number: US-ASTRAZENECA-2011SE30651

PATIENT
  Age: 8 Year
  Sex: Male
  Weight: 24.5 kg

DRUGS (1)
  1. NEXIUM [Suspect]
     Route: 048
     Dates: start: 20101101

REACTIONS (4)
  - OFF LABEL USE [None]
  - ABDOMINAL PAIN UPPER [None]
  - BACK PAIN [None]
  - POLLAKIURIA [None]
